FAERS Safety Report 5263440-7 (Version None)
Quarter: 2007Q1

REPORT INFORMATION
  Report Type: 
  Country: None (occurrence: None)
  Receive Date: 20070313
  Receipt Date: 20070302
  Transmission Date: 20070707
  Serious: Yes (Other)
  Sender: FDA-Public Use
  Company Number: GB-BAYER-200710279BNE

PATIENT
  Age: 68 Year
  Sex: Male
  Weight: 65 kg

DRUGS (11)
  1. SORAFENIB [Suspect]
     Indication: RENAL CELL CARCINOMA STAGE UNSPECIFIED
     Dosage: TOTAL DAILY DOSE: 800 MG
     Route: 048
     Dates: start: 20060811, end: 20060822
  2. SORAFENIB [Suspect]
     Route: 048
     Dates: start: 20060922, end: 20070221
  3. MOVICOL [Concomitant]
     Indication: CONSTIPATION
     Route: 048
     Dates: start: 20060323
  4. MST [Concomitant]
     Indication: CANCER PAIN
     Route: 048
     Dates: start: 20060101
  5. METOCLOPRAMIDE [Concomitant]
     Indication: NAUSEA
     Route: 048
     Dates: start: 20060807
  6. ORAMORPH SR [Concomitant]
     Indication: PAIN
     Route: 048
     Dates: start: 20060904
  7. MEGESTROL ACETATE [Concomitant]
     Indication: DRUG USE FOR UNKNOWN INDICATION
     Route: 048
     Dates: start: 20060908, end: 20070302
  8. FORTISIP [Concomitant]
     Indication: MEDICAL DIET
     Route: 048
     Dates: start: 20060701
  9. INNOHEP [Concomitant]
     Indication: PULMONARY EMBOLISM
     Route: 058
     Dates: start: 20060323
  10. SALBUTAMOL [Concomitant]
     Indication: WHEEZING
     Route: 055
     Dates: start: 20070101
  11. BECOTIDE [Concomitant]
     Indication: WHEEZING
     Route: 055
     Dates: start: 20070101

REACTIONS (1)
  - RETINAL VEIN OCCLUSION [None]
